FAERS Safety Report 8609589-X (Version None)
Quarter: 2012Q3

REPORT INFORMATION
  Report Type: 
  Country: None (occurrence: None)
  Receive Date: 20120821
  Receipt Date: 20120814
  Transmission Date: 20120928
  Serious: Yes (Other)
  Sender: FDA-Public Use
  Company Number: US-PFIZER INC-2012199876

PATIENT
  Sex: Female

DRUGS (2)
  1. KETOROLAC [Concomitant]
     Dosage: UNK
  2. LYRICA [Suspect]
     Indication: FIBROMYALGIA
     Dosage: 150 MG, UNK

REACTIONS (1)
  - WEIGHT INCREASED [None]
